FAERS Safety Report 18895684 (Version 1)
Quarter: 2021Q1

REPORT INFORMATION
  Report Type: Spontaneous
  Country: DK (occurrence: DK)
  Receive Date: 20210216
  Receipt Date: 20210216
  Transmission Date: 20210420
  Serious: Yes (Hospitalization)
  Sender: FDA-Public Use
  Company Number: DK-AUROBINDO-AUR-APL-2021-005836

PATIENT
  Age: 74 Year
  Sex: Female

DRUGS (3)
  1. GABAPENTIN HARD CAPSULES [Suspect]
     Active Substance: GABAPENTIN
     Indication: PROCEDURAL PAIN
     Dosage: 900 MILLIGRAM, ONCE A DAY (STRENGTH: 300MG)
     Route: 065
     Dates: start: 20180115
  2. TRAMADOL. [Concomitant]
     Active Substance: TRAMADOL
     Indication: PROCEDURAL PAIN
     Dosage: 200 MILLIGRAM, ONCE A DAY (STRENGTH: 100 MG)
     Route: 065
     Dates: start: 20180115
  3. KETOGAN [KETOBEMIDONE HYDROCHLORIDE] [Suspect]
     Active Substance: KETOBEMIDONE HYDROCHLORIDE
     Indication: PROCEDURAL PAIN
     Dosage: 4 DOSAGE FORM, ONCE A DAY (STRENGTH:5 + 25 MG)
     Route: 065
     Dates: start: 20180115

REACTIONS (2)
  - Fall [Recovered/Resolved with Sequelae]
  - Dizziness [Recovered/Resolved]

NARRATIVE: CASE EVENT DATE: 20180116
